FAERS Safety Report 23959261 (Version 4)
Quarter: 2025Q2

REPORT INFORMATION
  Report Type: Spontaneous
  Country: US (occurrence: US)
  Receive Date: 20240611
  Receipt Date: 20250520
  Transmission Date: 20250717
  Serious: Yes (Death, Hospitalization)
  Sender: TEVA
  Company Number: US-TEVA-VS-3202909

PATIENT
  Age: 29 Year
  Sex: Male

DRUGS (2)
  1. COLCHICINE [Suspect]
     Active Substance: COLCHICINE
     Indication: Suicide attempt
     Route: 065
  2. CARVEDILOL [Suspect]
     Active Substance: CARVEDILOL
     Indication: Myopericarditis
     Route: 048

REACTIONS (11)
  - Right ventricular failure [Fatal]
  - Respiratory gas exchange disorder [Fatal]
  - Intentional overdose [Fatal]
  - Metabolic acidosis [Fatal]
  - Hepatic failure [Fatal]
  - Respiratory acidosis [Fatal]
  - Acute respiratory distress syndrome [Fatal]
  - Cardiogenic shock [Fatal]
  - Renal failure [Fatal]
  - Distributive shock [Fatal]
  - Multiple organ dysfunction syndrome [Fatal]
